FAERS Safety Report 13467432 (Version 5)
Quarter: 2019Q1

REPORT INFORMATION
  Report Type: Spontaneous
  Country: US (occurrence: US)
  Receive Date: 20170421
  Receipt Date: 20190327
  Transmission Date: 20190417
  Serious: Yes (Other)
  Sender: FDA-Public Use
  Company Number: US-SA-2017SA071751

PATIENT
  Age: 80 Year
  Sex: Female

DRUGS (19)
  1. PRALUENT [Suspect]
     Active Substance: ALIROCUMAB
     Indication: HYPERLIPIDAEMIA
  2. ERGOCALCIFEROL. [Concomitant]
     Active Substance: ERGOCALCIFEROL
     Dosage: UNK UNK,UNK
     Route: 065
  3. PARACETAMOL [Concomitant]
     Active Substance: ACETAMINOPHEN
     Dosage: UNK UNK,UNK
     Route: 065
  4. OXYCODONE HYDROCHLORIDE. [Concomitant]
     Active Substance: OXYCODONE HYDROCHLORIDE
  5. HUMALOG [Concomitant]
     Active Substance: INSULIN LISPRO
  6. ONDANSETRON HYDROCHLORIDE. [Concomitant]
     Active Substance: ONDANSETRON HYDROCHLORIDE
     Dosage: UNK UNK,UNK
     Route: 065
  7. OMEPRAZOLE. [Concomitant]
     Active Substance: OMEPRAZOLE
  8. FUROSEMIDE. [Concomitant]
     Active Substance: FUROSEMIDE
  9. VITAMINS NOS [Concomitant]
     Active Substance: VITAMINS
     Dosage: UNK UNK,UNK
     Route: 065
  10. MAG-OX [Concomitant]
     Active Substance: MAGNESIUM OXIDE
     Dosage: UNK UNK,UNK
     Route: 065
  11. LEVOXYL [Concomitant]
     Active Substance: LEVOTHYROXINE SODIUM
  12. VALIUM [Concomitant]
     Active Substance: DIAZEPAM
     Dosage: UNK UNK,UNK
     Route: 065
  13. GLUCAGON. [Concomitant]
     Active Substance: GLUCAGON
     Dosage: UNK
  14. METOPROLOL TARTRATE. [Concomitant]
     Active Substance: METOPROLOL TARTRATE
     Dosage: UNK UNK,UNK
     Route: 065
  15. CYANOCOBALAMIN. [Concomitant]
     Active Substance: CYANOCOBALAMIN
  16. CRESTOR [Concomitant]
     Active Substance: ROSUVASTATIN CALCIUM
  17. BENADRYL ALLERGY [Concomitant]
     Active Substance: DIPHENHYDRAMINE HYDROCHLORIDE
     Dosage: UNK
  18. PRALUENT [Suspect]
     Active Substance: ALIROCUMAB
     Indication: ESSENTIAL HYPERTENSION
     Dosage: 150 MG,QOW
     Route: 058
     Dates: start: 20170228
  19. GLIBENCLAMIDE [Concomitant]
     Active Substance: GLYBURIDE

REACTIONS (8)
  - Myocardial infarction [Unknown]
  - Eyelid margin crusting [Unknown]
  - Pulmonary oedema [Unknown]
  - Rhinorrhoea [Unknown]
  - Ocular hyperaemia [Unknown]
  - Dry eye [Unknown]
  - Pigmentation disorder [Unknown]
  - Blood glucose increased [Unknown]

NARRATIVE: CASE EVENT DATE: 20180117
